FAERS Safety Report 21854723 (Version 1)
Quarter: 2023Q1

REPORT INFORMATION
  Report Type: Spontaneous
  Country: US (occurrence: None)
  Receive Date: 20230111
  Receipt Date: 20230111
  Transmission Date: 20230418
  Serious: Yes (Life-Threatening, Hospitalization)
  Sender: FDA-Public Use
  Company Number: None

PATIENT
  Age: 63 Year
  Sex: Female
  Weight: 67 kg

DRUGS (1)
  1. IRON SUCROSE [Suspect]
     Active Substance: IRON SUCROSE
     Indication: Iron deficiency anaemia
     Dosage: OTHER FREQUENCY : ONCE;?
     Route: 040
     Dates: start: 20221109, end: 20221109

REACTIONS (16)
  - Dizziness [None]
  - Burning sensation [None]
  - Peripheral swelling [None]
  - Joint swelling [None]
  - Urticaria [None]
  - Rash macular [None]
  - Burning sensation [None]
  - Rash [None]
  - Dizziness [None]
  - Dyspnoea [None]
  - Confusional state [None]
  - Loss of consciousness [None]
  - Rash erythematous [None]
  - Amnesia [None]
  - Infusion related reaction [None]
  - Cardio-respiratory arrest [None]

NARRATIVE: CASE EVENT DATE: 20221109
